FAERS Safety Report 10294579 (Version 1)
Quarter: 2014Q3

REPORT INFORMATION
  Report Type: Spontaneous
  Country: DE (occurrence: DE)
  Receive Date: 20140710
  Receipt Date: 20140710
  Transmission Date: 20150326
  Serious: Yes (Life-Threatening, Hospitalization, Other)
  Sender: FDA-Public Use
  Company Number: DE-TEVA-492378GER

PATIENT
  Age: 14 Month
  Sex: Female

DRUGS (3)
  1. ACTINOMYCIN D [Suspect]
     Active Substance: DACTINOMYCIN
     Indication: RHABDOID TUMOUR OF THE KIDNEY
     Route: 042
     Dates: start: 20140422, end: 2014
  2. VINCRISTIN [Suspect]
     Active Substance: VINCRISTINE
     Indication: NEPHRECTOMY
     Dosage: ON DAY 1 AND 8
     Route: 042
     Dates: start: 20140422, end: 20140623
  3. CYCLOPHOSPHAMID [Suspect]
     Active Substance: CYCLOPHOSPHAMIDE
     Indication: NEPHRECTOMY
     Route: 042
     Dates: start: 20140422, end: 2014

REACTIONS (2)
  - Acute hepatic failure [Not Recovered/Not Resolved]
  - Venoocclusive liver disease [Not Recovered/Not Resolved]

NARRATIVE: CASE EVENT DATE: 2014
